FAERS Safety Report 6087954-5 (Version None)
Quarter: 2009Q1

REPORT INFORMATION
  Report Type: 
  Country: None (occurrence: None)
  Receive Date: 20090219
  Receipt Date: 20090213
  Transmission Date: 20090719
  Serious: Yes (Other)
  Sender: FDA-Public Use
  Company Number: 175783

PATIENT

DRUGS (1)
  1. PRECEDEX [Suspect]
     Dates: start: 20090213, end: 20090213

REACTIONS (1)
  - UNRESPONSIVE TO STIMULI [None]
